FAERS Safety Report 7158133-5 (Version None)
Quarter: 2010Q4

REPORT INFORMATION
  Report Type: 
  Country: None (occurrence: None)
  Receive Date: 20101214
  Receipt Date: 20100429
  Transmission Date: 20110411
  Serious: No
  Sender: FDA-Public Use
  Company Number: US-ASTRAZENECA-2010SE19551

PATIENT
  Age: 69 Year
  Sex: Male
  Weight: 102.1 kg

DRUGS (6)
  1. CRESTOR [Suspect]
     Indication: BLOOD CHOLESTEROL INCREASED
     Route: 048
     Dates: start: 20091001
  2. CRESTOR [Suspect]
     Route: 048
  3. CRESTOR [Suspect]
     Route: 048
     Dates: end: 20100422
  4. EFFEXOR [Concomitant]
  5. CELEBREX [Concomitant]
  6. MORPHINE PUMP [Concomitant]

REACTIONS (7)
  - ARTHRALGIA [None]
  - DYSSTASIA [None]
  - FALL [None]
  - MUSCLE STRAIN [None]
  - MUSCULOSKELETAL PAIN [None]
  - NECK PAIN [None]
  - PAIN [None]
